FAERS Safety Report 14324227 (Version 1)
Quarter: 2017Q4

REPORT INFORMATION
  Report Type: Spontaneous
  Country: JP (occurrence: JP)
  Receive Date: 20171226
  Receipt Date: 20171226
  Transmission Date: 20180321
  Serious: Yes (Other)
  Sender: FDA-Public Use
  Company Number: PHJP2017JP035807

PATIENT
  Age: 63 Year
  Sex: Female

DRUGS (2)
  1. COSENTYX [Suspect]
     Active Substance: SECUKINUMAB
     Indication: PSORIATIC ARTHROPATHY
     Dosage: 300 MG, UNK PER APPLICATION
     Route: 058
     Dates: start: 20170614, end: 20171115
  2. TACROLIMUS. [Concomitant]
     Active Substance: TACROLIMUS
     Indication: PRODUCT USED FOR UNKNOWN INDICATION
     Dosage: UNK
     Route: 048
     Dates: start: 20170614

REACTIONS (12)
  - Oropharyngeal pain [Unknown]
  - Pharyngitis [Recovering/Resolving]
  - C-reactive protein increased [Unknown]
  - Stomatitis [Recovered/Resolved]
  - Oral pain [Unknown]
  - Thyroiditis subacute [Recovering/Resolving]
  - Blood immunoglobulin G increased [Unknown]
  - Epiglottitis [Unknown]
  - Lymphadenopathy [Recovered/Resolved]
  - Feeding disorder [Recovering/Resolving]
  - Weight decreased [Unknown]
  - Oral candidiasis [Unknown]

NARRATIVE: CASE EVENT DATE: 201709
